FAERS Safety Report 11192388 (Version 1)
Quarter: 2015Q2

REPORT INFORMATION
  Report Type: Spontaneous
  Country: US (occurrence: US)
  Receive Date: 20150616
  Receipt Date: 20150616
  Transmission Date: 20150821
  Serious: Yes (Other)
  Sender: FDA-Public Use
  Company Number: US-PERRIGO-15US005804

PATIENT
  Age: 39 Year
  Sex: Female

DRUGS (3)
  1. PSEUDOEPHEDRINE HYDROCHLORIDE 30 MG 432 [Suspect]
     Active Substance: PSEUDOEPHEDRINE HYDROCHLORIDE
     Indication: SINUS DISORDER
     Dosage: 60 MG, TID
     Route: 048
     Dates: end: 20150604
  2. PSEUDOEPHEDRINE HYDROCHLORIDE 30 MG 432 [Suspect]
     Active Substance: PSEUDOEPHEDRINE HYDROCHLORIDE
     Indication: NASAL CONGESTION
  3. PSEUDOEPHEDRINE HYDROCHLORIDE 30 MG 432 [Suspect]
     Active Substance: PSEUDOEPHEDRINE HYDROCHLORIDE
     Indication: DYSPNOEA

REACTIONS (15)
  - Seizure [Not Recovered/Not Resolved]
  - Cardiac disorder [Not Recovered/Not Resolved]
  - Dyspnoea [Not Recovered/Not Resolved]
  - Blood urine present [Not Recovered/Not Resolved]
  - Ear haemorrhage [Not Recovered/Not Resolved]
  - Abdominal pain [Not Recovered/Not Resolved]
  - Off label use [Recovered/Resolved]
  - Nausea [Not Recovered/Not Resolved]
  - Sinus congestion [Not Recovered/Not Resolved]
  - Epistaxis [Not Recovered/Not Resolved]
  - Drug ineffective [Unknown]
  - Anaphylactic reaction [Recovering/Resolving]
  - Blood pressure fluctuation [Not Recovered/Not Resolved]
  - Expired product administered [Recovered/Resolved]
  - Chest pain [Not Recovered/Not Resolved]

NARRATIVE: CASE EVENT DATE: 20141201
